FAERS Safety Report 7424557-1 (Version None)
Quarter: 2011Q2

REPORT INFORMATION
  Report Type: 
  Country: None (occurrence: None)
  Receive Date: 20110419
  Receipt Date: 20110418
  Transmission Date: 20111010
  Serious: Yes (Hospitalization, Other)
  Sender: FDA-Public Use
  Company Number: JP-PFIZER INC-2011053497

PATIENT
  Age: 37 Year
  Sex: Male
  Weight: 62.6 kg

DRUGS (4)
  1. ROHYPNOL [Concomitant]
     Dosage: UNK
  2. SEROQUEL [Concomitant]
     Dosage: UNK
  3. ZOLOFT [Suspect]
     Dosage: 50 MG, 1X/DAY
     Route: 048
     Dates: start: 20110308, end: 20110308
  4. ZOLOFT [Suspect]
     Indication: DEPRESSION
     Dosage: 25 MG, 1X/DAY
     Route: 048
     Dates: start: 20110301, end: 20110307

REACTIONS (2)
  - SEROTONIN SYNDROME [None]
  - ALTERED STATE OF CONSCIOUSNESS [None]
